FAERS Safety Report 19242873 (Version 1)
Quarter: 2021Q2

REPORT INFORMATION
  Report Type: Spontaneous
  Country: US (occurrence: US)
  Receive Date: 20210511
  Receipt Date: 20210511
  Transmission Date: 20210717
  Serious: No
  Sender: FDA-Public Use
  Company Number: None

PATIENT
  Age: 51 Year
  Sex: Female

DRUGS (4)
  1. WELLBUTRIN [Suspect]
     Active Substance: BUPROPION HYDROCHLORIDE
  2. BACLOFEN. [Suspect]
     Active Substance: BACLOFEN
  3. HYDROCODONE [Suspect]
     Active Substance: HYDROCODONE
  4. KESIMPTA [Suspect]
     Active Substance: OFATUMUMAB

REACTIONS (7)
  - Headache [None]
  - Loss of control of legs [None]
  - Vomiting [None]
  - Chills [None]
  - Pyrexia [None]
  - Muscle spasms [None]
  - Back pain [None]

NARRATIVE: CASE EVENT DATE: 20210508
